FAERS Safety Report 6724874-4 (Version None)
Quarter: 2010Q2

REPORT INFORMATION
  Report Type: 
  Country: None (occurrence: None)
  Receive Date: 20100513
  Receipt Date: 20100513
  Transmission Date: 20101027
  Serious: Yes (Life-Threatening)
  Sender: FDA-Public Use
  Company Number: None

PATIENT
  Sex: Female
  Weight: 81.6475 kg

DRUGS (2)
  1. AMLODIPINE BESYLATE AND BENAZEPRIL HCL [Suspect]
     Indication: HYPERTENSION
     Dosage: TAKE 1 CAPSULE DAILY PO
     Route: 048
     Dates: start: 20100408, end: 20100424
  2. UNKNOWN [Concomitant]

REACTIONS (6)
  - ABDOMINAL DISTENSION [None]
  - DYSPEPSIA [None]
  - EYE PAIN [None]
  - PRODUCT SUBSTITUTION ISSUE [None]
  - VISION BLURRED [None]
  - VISUAL IMPAIRMENT [None]
